FAERS Safety Report 5327417-5 (Version None)
Quarter: 2007Q2

REPORT INFORMATION
  Report Type: 
  Country: None (occurrence: None)
  Receive Date: 20070226
  Receipt Date: 20070117
  Transmission Date: 20071010
  Serious: Yes (Hospitalization, Other)
  Sender: FDA-Public Use
  Company Number: WAES 0701USA03160

PATIENT
  Sex: Female

DRUGS (1)
  1. VYTORIN [Suspect]
     Dosage: SEE IMAGE
     Route: 048

REACTIONS (1)
  - RHABDOMYOLYSIS [None]
